FAERS Safety Report 16059605 (Version 4)
Quarter: 2019Q1

REPORT INFORMATION
  Report Type: Spontaneous
  Country: US (occurrence: US)
  Receive Date: 20190311
  Receipt Date: 20190322
  Transmission Date: 20190418
  Serious: Yes (Other)
  Sender: FDA-Public Use
  Company Number: US-CELGENEUS-USA-20190301955

PATIENT
  Sex: Male

DRUGS (1)
  1. REVLIMID [Suspect]
     Active Substance: LENALIDOMIDE
     Indication: PLASMA CELL MYELOMA
     Dosage: 15 MILLIGRAM
     Route: 048
     Dates: start: 20190225

REACTIONS (6)
  - Constipation [Unknown]
  - Eye inflammation [Unknown]
  - Diarrhoea [Unknown]
  - Dizziness [Unknown]
  - Glaucoma [Unknown]
  - Scleritis [Unknown]

NARRATIVE: CASE EVENT DATE: 2019
